FAERS Safety Report 6429282-1 (Version None)
Quarter: 2009Q4

REPORT INFORMATION
  Report Type: 
  Country: None (occurrence: None)
  Receive Date: 20091105
  Receipt Date: 20091030
  Transmission Date: 20100525
  Serious: Yes (Life-Threatening, Other)
  Sender: FDA-Public Use
  Company Number: PHEH2009US13145

PATIENT
  Sex: Male

DRUGS (14)
  1. ZOMETA [Suspect]
     Indication: OSTEOPOROSIS
     Dosage: UNK
     Dates: start: 20090914, end: 20090914
  2. NORVASC [Concomitant]
     Indication: BLOOD PRESSURE
     Dosage: UNK, UNK
     Route: 065
  3. TOPROL-XL [Concomitant]
     Indication: CARDIOMYOPATHY
     Dosage: UNK, UNK
     Route: 065
  4. PRINIVIL [Concomitant]
     Indication: CARDIOMYOPATHY
     Dosage: UNK, UNK
     Route: 065
  5. POTASSIUM CHLORIDE [Concomitant]
     Dosage: UNK, UNK
     Route: 065
  6. COUMADIN [Concomitant]
     Indication: ATRIAL FIBRILLATION
     Dosage: UNK, UNK
     Route: 065
  7. ZOCOR [Concomitant]
     Dosage: UNK, UNK
     Route: 065
  8. FLOMAX [Concomitant]
     Dosage: UNK, UNK
     Route: 065
  9. TRAVATAN [Concomitant]
     Dosage: UNK, UNK
     Route: 065
  10. LASIX [Concomitant]
     Indication: CARDIOMYOPATHY
     Dosage: UNK, UNK
     Route: 065
  11. POTASSIUM TABLETS EFFERVESCENT [Concomitant]
     Indication: MINERAL SUPPLEMENTATION
  12. BABY ASPIRIN [Concomitant]
     Indication: ATRIAL FIBRILLATION
  13. CALCIUM CITRATE [Concomitant]
  14. OXYGEN [Concomitant]
     Dosage: AT NIGHT

REACTIONS (13)
  - ARTHRALGIA [None]
  - DISCOMFORT [None]
  - FEELING ABNORMAL [None]
  - GAIT DISTURBANCE [None]
  - HEMIPLEGIA [None]
  - JOINT RANGE OF MOTION DECREASED [None]
  - JOINT SWELLING [None]
  - MUSCULOSKELETAL PAIN [None]
  - MYALGIA [None]
  - OEDEMA PERIPHERAL [None]
  - PAIN [None]
  - PAIN IN EXTREMITY [None]
  - PYREXIA [None]
